FAERS Safety Report 22056824 (Version 1)
Quarter: 2023Q1

REPORT INFORMATION
  Report Type: Other
  Country: DE (occurrence: None)
  Receive Date: 20230303
  Receipt Date: 20230303
  Transmission Date: 20230418
  Serious: Yes (Hospitalization)
  Sender: FDA-Public Use
  Company Number: DE-ROCHE-3296950

PATIENT
  Age: 58 Year
  Sex: Female

DRUGS (2)
  1. TOCILIZUMAB [Suspect]
     Active Substance: TOCILIZUMAB
     Indication: Rheumatoid arthritis
     Route: 058
     Dates: end: 20220905
  2. ETANERCEPT [Suspect]
     Active Substance: ETANERCEPT
     Indication: Rheumatoid arthritis
     Route: 058
     Dates: end: 20220801

REACTIONS (3)
  - Scar [Recovered/Resolved]
  - Keratopathy [Recovered/Resolved]
  - Skin abrasion [Recovered/Resolved]

NARRATIVE: CASE EVENT DATE: 20230103
